FAERS Safety Report 10072152 (Version 1)
Quarter: 2014Q2

REPORT INFORMATION
  Report Type: Spontaneous
  Country: GB (occurrence: GB)
  Receive Date: 20140411
  Receipt Date: 20140411
  Transmission Date: 20141212
  Serious: Yes (Other)
  Sender: FDA-Public Use
  Company Number: GB-BAYER-2014-051264

PATIENT
  Age: 46 Year
  Sex: Female
  Weight: 63 kg

DRUGS (6)
  1. MIRENA [Suspect]
     Indication: MENORRHAGIA
     Dosage: DAILY DOSE 20 ?G
     Dates: start: 20140128
  2. ARGININE [Concomitant]
  3. COENZYME Q10 [Concomitant]
  4. GARLIC [Concomitant]
  5. HAWTHORN [Concomitant]
  6. OMEGA 3 FISH OIL [Concomitant]

REACTIONS (6)
  - Arrhythmia [Unknown]
  - Cardiac disorder [Unknown]
  - Hypertension [Unknown]
  - Mood swings [Unknown]
  - Anger [Unknown]
  - Stress [Unknown]
